FAERS Safety Report 13703154 (Version 1)
Quarter: 2017Q2

REPORT INFORMATION
  Report Type: Spontaneous
  Country: IT (occurrence: IT)
  Receive Date: 20170629
  Receipt Date: 20170629
  Transmission Date: 20170830
  Serious: Yes (Hospitalization)
  Sender: FDA-Public Use
  Company Number: IT-PFIZER INC-2017283015

PATIENT
  Age: 49 Year
  Sex: Female

DRUGS (1)
  1. ZOLOFT [Suspect]
     Active Substance: SERTRALINE HYDROCHLORIDE
     Indication: DEPRESSION
     Dosage: 18 DF, TOTAL
     Route: 048
     Dates: start: 20170617, end: 20170617

REACTIONS (1)
  - Drug use disorder [Unknown]

NARRATIVE: CASE EVENT DATE: 20170617
